FAERS Safety Report 6795407-1 (Version None)
Quarter: 2010Q2

REPORT INFORMATION
  Report Type: 
  Country: None (occurrence: None)
  Receive Date: 20100624
  Receipt Date: 20100624
  Transmission Date: 20101027
  Serious: Yes (Life-Threatening, Other)
  Sender: FDA-Public Use
  Company Number: None

PATIENT
  Sex: Female
  Weight: 81.6475 kg

DRUGS (1)
  1. SEROQUEL [Suspect]
     Indication: BIPOLAR I DISORDER
     Dosage: 100 MG DAILY
     Dates: start: 20070701

REACTIONS (8)
  - BLOOD GLUCOSE INCREASED [None]
  - DECREASED IMMUNE RESPONSIVENESS [None]
  - DRUG DEPENDENCE [None]
  - GAIT DISTURBANCE [None]
  - INFLUENZA [None]
  - MOBILITY DECREASED [None]
  - MUSCULOSKELETAL STIFFNESS [None]
  - WEIGHT INCREASED [None]
